FAERS Safety Report 4487927-X (Version None)
Quarter: 2004Q4

REPORT INFORMATION
  Report Type: 
  Country: None (occurrence: None)
  Receive Date: 20041022
  Receipt Date: 20041008
  Transmission Date: 20050328
  Serious: Yes (Hospitalization)
  Sender: FDA-Public Use
  Company Number: 2004-DE-05219DE

PATIENT
  Sex: Female

DRUGS (5)
  1. ATROVENT [Suspect]
  2. VERAPAMIL [Concomitant]
  3. ISOSORBIDE DINITRATE [Concomitant]
  4. DIGITOXIN TAB [Concomitant]
  5. VENTOLAIR (BECLOMETASONE DIPROPIONATE) [Concomitant]

REACTIONS (4)
  - BALANCE DISORDER [None]
  - DEAFNESS [None]
  - VERTIGO [None]
  - VISUAL DISTURBANCE [None]
